FAERS Safety Report 5124261-9 (Version None)
Quarter: 2006Q3

REPORT INFORMATION
  Report Type: 
  Country: None (occurrence: None)
  Receive Date: 20060816
  Receipt Date: 20060425
  Transmission Date: 20061208
  Serious: No
  Sender: FDA-Public Use
  Company Number: US200604002463

PATIENT
  Age: 65 Year
  Sex: Male

DRUGS (3)
  1. CIALIS [Suspect]
     Dosage: 20 MG, DAILY (1/D)
     Dates: start: 20060401
  2. VASOTEC [Concomitant]
  3. FOLIC ACID [Concomitant]

REACTIONS (2)
  - RASH MACULAR [None]
  - RASH PRURITIC [None]
